FAERS Safety Report 8037907-2 (Version None)
Quarter: 2012Q1

REPORT INFORMATION
  Report Type: 
  Country: None (occurrence: None)
  Receive Date: 20120111
  Receipt Date: 20120106
  Transmission Date: 20120608
  Serious: Yes (Hospitalization, Other)
  Sender: FDA-Public Use
  Company Number: NL-ABBOTT-12P-114-0888800-00

PATIENT
  Sex: Male
  Weight: 76 kg

DRUGS (1)
  1. LEUPROLIDE ACETATE [Suspect]
     Indication: PROSTATE CANCER
     Route: 058
     Dates: start: 20110429

REACTIONS (2)
  - WEIGHT INCREASED [None]
  - TRANSURETHRAL PROSTATECTOMY [None]
